FAERS Safety Report 6704701-1 (Version None)
Quarter: 2010Q2

REPORT INFORMATION
  Report Type: 
  Country: None (occurrence: None)
  Receive Date: 20100430
  Receipt Date: 20100426
  Transmission Date: 20101027
  Serious: Yes (Death)
  Sender: FDA-Public Use
  Company Number: GB-CELGENEUS-167-50794-10041153

PATIENT
  Age: 73 Year
  Sex: Female
  Weight: 52 kg

DRUGS (11)
  1. VIDAZA [Suspect]
     Indication: MYELODYSPLASTIC SYNDROME
     Route: 050
     Dates: start: 20091101, end: 20100301
  2. MEROPENEM [Concomitant]
     Indication: INFECTION
     Route: 065
  3. FLUCONAZOLE [Concomitant]
     Indication: INFECTION
     Route: 065
  4. PREDNISOLONE [Concomitant]
     Route: 065
  5. NEUPOGEN [Concomitant]
     Indication: NEUTROPENIA
     Route: 065
  6. CIPROFLOXACIN [Concomitant]
     Indication: INFECTION
     Route: 065
  7. OMEPRAZOLE [Concomitant]
     Indication: GASTROOESOPHAGEAL REFLUX DISEASE
     Route: 065
  8. ONDANSETRON [Concomitant]
     Indication: NAUSEA
     Route: 065
  9. ONDANSETRON [Concomitant]
     Indication: VOMITING
  10. PREGABALIN [Concomitant]
     Route: 065
  11. PYRIDOXINE HCL [Concomitant]

REACTIONS (3)
  - DEPRESSION [None]
  - STAPHYLOCOCCAL INFECTION [None]
  - WEIGHT DECREASED [None]
